FAERS Safety Report 7907460-X (Version None)
Quarter: 2011Q4

REPORT INFORMATION
  Report Type: 
  Country: None (occurrence: None)
  Receive Date: 20111110
  Receipt Date: 20111031
  Transmission Date: 20120403
  Serious: Yes (Other)
  Sender: FDA-Public Use
  Company Number: CN-BAYER-2011-105524

PATIENT
  Age: 81 Year
  Sex: Female

DRUGS (3)
  1. AVELOX [Suspect]
     Indication: INFECTION PROPHYLAXIS
     Dosage: 400 MG, QD
     Route: 041
  2. OXOGEN [Concomitant]
  3. SODIUM CHLORIDE [Concomitant]
     Indication: INFECTION PROPHYLAXIS
     Dosage: 400MG/D
     Route: 041

REACTIONS (4)
  - DELIRIUM [None]
  - HALLUCINATION, AUDITORY [None]
  - LOGORRHOEA [None]
  - AGITATION [None]
